FAERS Safety Report 12548466 (Version 1)
Quarter: 2016Q3

REPORT INFORMATION
  Report Type: Spontaneous
  Country: US (occurrence: None)
  Receive Date: 20160711
  Receipt Date: 20160711
  Transmission Date: 20161109
  Serious: Yes (Disabling, Other)
  Sender: FDA-Public Use
  Company Number: None

PATIENT
  Age: 63 Year
  Sex: Female
  Weight: 54.43 kg

DRUGS (5)
  1. SYNTHROID [Concomitant]
     Active Substance: LEVOTHYROXINE SODIUM
  2. WELLBUTRIN [Concomitant]
     Active Substance: BUPROPION HYDROCHLORIDE
  3. PHILLIPS MILK OF MAGNESIA [Concomitant]
  4. TRANSDERM SCOP [Suspect]
     Active Substance: SCOPOLAMINE
     Indication: NAUSEA
     Dosage: APPLIED AS MEDUCATED PATCH TO SKIN
     Dates: start: 20160328, end: 20160608
  5. FENTANYL. [Concomitant]
     Active Substance: FENTANYL

REACTIONS (6)
  - Application site reaction [None]
  - Withdrawal syndrome [None]
  - Application site erythema [None]
  - Vomiting [None]
  - Application site discharge [None]
  - Nausea [None]

NARRATIVE: CASE EVENT DATE: 20160607
